FAERS Safety Report 6079772-9 (Version None)
Quarter: 2009Q1

REPORT INFORMATION
  Report Type: 
  Country: None (occurrence: None)
  Receive Date: 20090212
  Receipt Date: 20090206
  Transmission Date: 20090719
  Serious: Yes (Other)
  Sender: FDA-Public Use
  Company Number: UKP09000036

PATIENT
  Age: 51 Year
  Sex: Male

DRUGS (3)
  1. ASACOL [Suspect]
     Indication: CROHN'S DISEASE
     Dosage: ORAL
     Route: 048
  2. BUDESONIDE [Suspect]
     Indication: CROHN'S DISEASE
     Dosage: ORAL
     Route: 048
  3. AZATHIOPRINE [Suspect]
     Indication: CROHN'S DISEASE
     Dosage: ORAL
     Route: 048

REACTIONS (1)
  - YELLOW SKIN [None]
